FAERS Safety Report 4712702-8 (Version None)
Quarter: 2005Q3

REPORT INFORMATION
  Report Type: 
  Country: None (occurrence: None)
  Receive Date: 20050707
  Receipt Date: 20050531
  Transmission Date: 20060218
  Serious: Yes (Other)
  Sender: FDA-Public Use
  Company Number: PHEH2005US06229

PATIENT
  Age: 7 Year
  Sex: Male

DRUGS (1)
  1. RITALIN LA [Suspect]
     Dosage: ORAL
     Route: 048

REACTIONS (1)
  - WEIGHT DECREASED [None]
